FAERS Safety Report 6219482-8 (Version None)
Quarter: 2009Q2

REPORT INFORMATION
  Report Type: 
  Country: None (occurrence: None)
  Receive Date: 20090609
  Receipt Date: 20090605
  Transmission Date: 20091009
  Serious: Yes (Death)
  Sender: FDA-Public Use
  Company Number: PHHY2009CA22350

PATIENT

DRUGS (1)
  1. ZOMETA [Suspect]
     Indication: PROSTATE CANCER
     Dosage: 3.5 MG, QMO
     Route: 042
     Dates: start: 20090522, end: 20090522

REACTIONS (1)
  - DEATH [None]
